FAERS Safety Report 25754918 (Version 1)
Quarter: 2025Q3

REPORT INFORMATION
  Report Type: Spontaneous
  Country: EU (occurrence: EU)
  Receive Date: 20250903
  Receipt Date: 20250903
  Transmission Date: 20251021
  Serious: Yes (Other)
  Sender: RANBAXY
  Company Number: EU-SUN PHARMACEUTICAL INDUSTRIES LTD-2025RR-524418

PATIENT
  Age: 63 Year
  Sex: Male

DRUGS (3)
  1. TRABECTEDIN [Suspect]
     Active Substance: TRABECTEDIN
     Indication: Dedifferentiated liposarcoma
     Route: 065
  2. DOXORUBICIN [Suspect]
     Active Substance: DOXORUBICIN
     Indication: Dedifferentiated liposarcoma
     Route: 065
  3. IFOSFAMIDE [Suspect]
     Active Substance: IFOSFAMIDE
     Indication: Dedifferentiated liposarcoma
     Route: 065

REACTIONS (3)
  - Haematotoxicity [Unknown]
  - Mechanical ileus [Unknown]
  - Therapeutic product effect incomplete [Unknown]
